FAERS Safety Report 8615932-8 (Version None)
Quarter: 2012Q3

REPORT INFORMATION
  Report Type: 
  Country: None (occurrence: None)
  Receive Date: 20120823
  Receipt Date: 20120816
  Transmission Date: 20120928
  Serious: Yes (Hospitalization)
  Sender: FDA-Public Use
  Company Number: JP-GLAXOSMITHKLINE-B0811382A

PATIENT
  Sex: Male
  Weight: 43 kg

DRUGS (19)
  1. PAXIL [Suspect]
     Indication: DEPRESSION
     Dosage: 10MG PER DAY
     Route: 048
     Dates: start: 20120615, end: 20120620
  2. FERROUS CITRATE [Concomitant]
     Dosage: 100MG PER DAY
     Route: 048
     Dates: start: 20120617, end: 20120626
  3. LANSOPRAZOLE [Concomitant]
     Dosage: 15MG PER DAY
     Route: 048
     Dates: start: 20111106
  4. CANDESARTAN CILEXETIL [Concomitant]
     Dosage: 4MG PER DAY
     Route: 048
     Dates: start: 20111106, end: 20120626
  5. ASPIRIN [Concomitant]
     Dosage: 100MG PER DAY
     Route: 048
     Dates: start: 20111106
  6. PENTASA [Concomitant]
     Dosage: 1500MG PER DAY
     Route: 048
     Dates: end: 20120626
  7. FUROSEMIDE [Concomitant]
     Dosage: 20MG PER DAY
     Route: 048
     Dates: start: 20111106
  8. CLARITH [Concomitant]
     Dosage: 400MG PER DAY
     Route: 048
     Dates: start: 20120606, end: 20120615
  9. CHINESE MEDICINE [Concomitant]
     Dosage: 6G PER DAY
     Route: 048
     Dates: start: 20120603, end: 20120626
  10. SIGMART [Concomitant]
     Dosage: 15MG PER DAY
     Route: 048
  11. CRESTOR [Concomitant]
     Dosage: 2.5MG PER DAY
     Route: 048
     Dates: start: 20111106
  12. PLAVIX [Concomitant]
     Dosage: 75MG PER DAY
     Route: 048
     Dates: start: 20111106
  13. RISEDRONATE SODIUM [Concomitant]
     Route: 048
  14. PENTASA [Concomitant]
     Dosage: 500MG PER DAY
     Route: 048
     Dates: start: 20120619, end: 20120619
  15. PREDNISOLONE [Concomitant]
     Dosage: 5MG PER DAY
     Route: 048
     Dates: start: 20111106
  16. ONEALFA [Concomitant]
     Dosage: 1MCG PER DAY
     Route: 048
     Dates: start: 20111106
  17. BASEN [Concomitant]
     Dosage: .9MG PER DAY
     Route: 048
     Dates: end: 20120626
  18. LAC-B [Concomitant]
     Dosage: 3G PER DAY
     Route: 048
  19. HALCION [Concomitant]
     Dosage: .125MG PER DAY
     Route: 048
     Dates: end: 20120626

REACTIONS (5)
  - RECTAL HAEMORRHAGE [None]
  - MELAENA [None]
  - DEPRESSION [None]
  - ANAEMIA [None]
  - HAEMATOCHEZIA [None]
